FAERS Safety Report 17032519 (Version 1)
Quarter: 2019Q4

REPORT INFORMATION
  Report Type: Spontaneous
  Country: CN (occurrence: CN)
  Receive Date: 20191114
  Receipt Date: 20191114
  Transmission Date: 20200122
  Serious: Yes (Hospitalization, Other)
  Sender: FDA-Public Use
  Company Number: CN-BRACCO-2019CN05780

PATIENT
  Age: 88 Year
  Sex: Female

DRUGS (1)
  1. SONOVUE [Suspect]
     Active Substance: SULFUR HEXAFLUORIDE
     Indication: ULTRASOUND DOPPLER
     Dosage: 1.2 ML, SINGLE
     Route: 042
     Dates: start: 20191111, end: 20191111

REACTIONS (4)
  - Muscular weakness [Unknown]
  - Cerebral artery embolism [Unknown]
  - Vomiting [Unknown]
  - Gait inability [Unknown]

NARRATIVE: CASE EVENT DATE: 20191111
